FAERS Safety Report 12226526 (Version 2)
Quarter: 2016Q2

REPORT INFORMATION
  Report Type: Spontaneous
  Country: US (occurrence: US)
  Receive Date: 20160331
  Receipt Date: 20160404
  Transmission Date: 20160815
  Serious: Yes (Hospitalization)
  Sender: FDA-Public Use
  Company Number: US-PFIZER INC-2016181390

PATIENT
  Age: 55 Year
  Sex: Male

DRUGS (2)
  1. CHANTIX [Suspect]
     Active Substance: VARENICLINE TARTRATE
     Indication: SMOKING CESSATION THERAPY
     Dosage: 0.5 MG, UNK
     Dates: start: 2016, end: 201603
  2. CHANTIX [Suspect]
     Active Substance: VARENICLINE TARTRATE
     Dosage: 1 MG, UNK
     Dates: start: 201603, end: 20160327

REACTIONS (15)
  - Drooling [Unknown]
  - Hallucination [Unknown]
  - Facial nerve disorder [Unknown]
  - Paranoia [Unknown]
  - Dyskinesia [Unknown]
  - Drug ineffective [Unknown]
  - Hyperhidrosis [Unknown]
  - Psychomotor hyperactivity [Unknown]
  - Tinnitus [Unknown]
  - Fear [Unknown]
  - Head discomfort [Unknown]
  - Nervousness [Unknown]
  - Screaming [Unknown]
  - Feeling abnormal [Unknown]
  - Hallucination, auditory [Unknown]

NARRATIVE: CASE EVENT DATE: 20160327
